FAERS Safety Report 7935046-X (Version None)
Quarter: 2011Q4

REPORT INFORMATION
  Report Type: 
  Country: None (occurrence: None)
  Receive Date: 20111122
  Receipt Date: 20111107
  Transmission Date: 20120403
  Serious: Yes (Other)
  Sender: FDA-Public Use
  Company Number: JP-WATSON-2011-19450

PATIENT
  Age: 59 Year
  Sex: Male

DRUGS (4)
  1. FLUOROURACIL [Suspect]
     Indication: COLORECTAL CANCER METASTATIC
     Dosage: 1650 MG/MM BOLUS AND INFUSION
     Route: 042
     Dates: start: 20100101
  2. LEUCOVORIN CALCIUM [Suspect]
     Indication: COLORECTAL CANCER METASTATIC
  3. OXALIPLATIN [Suspect]
     Indication: COLORECTAL CANCER METASTATIC
     Dosage: UNK
     Route: 042
     Dates: start: 20100101
  4. CETUXIMAB [Suspect]
     Indication: COLORECTAL CANCER METASTATIC

REACTIONS (2)
  - NEUROPATHY PERIPHERAL [None]
  - SKIN TOXICITY [None]
